FAERS Safety Report 10166528 (Version 1)
Quarter: 2014Q2

REPORT INFORMATION
  Report Type: Spontaneous
  Country: SE (occurrence: None)
  Receive Date: 20140508
  Receipt Date: 20140508
  Transmission Date: 20141212
  Serious: Yes (Hospitalization)
  Sender: FDA-Public Use
  Company Number: AUR-APL-2014-05440

PATIENT
  Age: 34 Year
  Sex: Female

DRUGS (8)
  1. ZOLPIDEM [Suspect]
     Indication: PRODUCT USED FOR UNKNOWN INDICATION
     Route: 048
     Dates: start: 20130216, end: 20130216
  2. SOBRIL [Suspect]
     Indication: PRODUCT USED FOR UNKNOWN INDICATION
     Route: 048
     Dates: start: 20130216, end: 20130216
  3. ERGENYL [Concomitant]
  4. SERTRALINE [Concomitant]
  5. OLANZAPINE [Concomitant]
  6. PROPAVAN [Suspect]
     Indication: PRODUCT USED FOR UNKNOWN INDICATION
     Route: 048
     Dates: start: 20130216, end: 20130216
  7. OXASCAND [Suspect]
     Indication: PRODUCT USED FOR UNKNOWN INDICATION
     Route: 048
     Dates: start: 20130216, end: 20130216
  8. PARACETAMOL [Suspect]
     Indication: PRODUCT USED FOR UNKNOWN INDICATION
     Route: 048
     Dates: start: 20130216, end: 20130216

REACTIONS (4)
  - Toxicity to various agents [None]
  - Suicidal ideation [None]
  - Anxiety [None]
  - Self-injurious ideation [None]
